FAERS Safety Report 14944271 (Version 1)
Quarter: 2018Q2

REPORT INFORMATION
  Report Type: Spontaneous
  Country: JP (occurrence: JP)
  Receive Date: 20180529
  Receipt Date: 20180529
  Transmission Date: 20180711
  Serious: Yes (Death, Hospitalization, Other)
  Sender: FDA-Public Use
  Company Number: PHBS1998JP27870

PATIENT
  Age: 7 Year
  Sex: Female
  Weight: 19.5 kg

DRUGS (6)
  1. SANDIMMUN (CICLOSPORIN) INFUSION [Suspect]
     Active Substance: CYCLOSPORINE
     Indication: BONE MARROW TRANSPLANT
     Dosage: 30-100 MG, UNK
     Route: 042
     Dates: end: 19961125
  2. SANDIMMUN (CICLOSPORIN) INFUSION [Suspect]
     Active Substance: CYCLOSPORINE
     Dosage: 36 MG, QD
     Route: 042
     Dates: start: 19960930
  3. SOLU-MEDROL [Concomitant]
     Active Substance: METHYLPREDNISOLONE SODIUM SUCCINATE
     Dosage: UNK
     Route: 065
     Dates: start: 19961009, end: 19961228
  4. SANDIMMUN (CICLOSPORIN) INFUSION [Suspect]
     Active Substance: CYCLOSPORINE
     Dosage: 30-100 MG, UNK
     Route: 042
     Dates: start: 19960928
  5. SANDIMMUN (CICLOSPORIN) INFUSION [Suspect]
     Active Substance: CYCLOSPORINE
     Dosage: 120 MG, QD
     Route: 042
     Dates: start: 19970516, end: 19970528
  6. SANDIMMUN (CICLOSPORIN) INFUSION [Suspect]
     Active Substance: CYCLOSPORINE
     Dosage: 72 MG, QD
     Route: 042
     Dates: start: 19961022

REACTIONS (4)
  - Hypertensive encephalopathy [Recovering/Resolving]
  - Haemolytic uraemic syndrome [Fatal]
  - Seizure [Recovered/Resolved]
  - Immunosuppressant drug level increased [Unknown]

NARRATIVE: CASE EVENT DATE: 19961027
